FAERS Safety Report 6034512-4 (Version None)
Quarter: 2009Q1

REPORT INFORMATION
  Report Type: 
  Country: None (occurrence: None)
  Receive Date: 20090112
  Receipt Date: 20090106
  Transmission Date: 20090719
  Serious: Yes (Hospitalization)
  Sender: FDA-Public Use
  Company Number: US-ELI_LILLY_AND_COMPANY-US200812004471

PATIENT
  Sex: Female

DRUGS (3)
  1. HUMALOG [Suspect]
     Dosage: 5 U, 3/D
     Dates: start: 20061113
  2. PREDNISONE TAB [Concomitant]
     Dosage: 5 MG, UNK
  3. ADVAIR DISKUS 250/50 [Concomitant]
     Dosage: UNK, UNK
     Route: 055

REACTIONS (5)
  - ASTHMA [None]
  - BLOOD GLUCOSE FLUCTUATION [None]
  - CARDIAC FAILURE CONGESTIVE [None]
  - EXPIRED DRUG ADMINISTERED [None]
  - VISUAL ACUITY REDUCED [None]
